FAERS Safety Report 8848214 (Version 1)
Quarter: 2012Q4

REPORT INFORMATION
  Report Type: 
  Country: ES (occurrence: ES)
  Receive Date: 20121018
  Receipt Date: 20121018
  Transmission Date: 20130627
  Serious: Yes (Other)
  Sender: FDA-Public Use
  Company Number: ES-BAYER-2012-106552

PATIENT
  Age: 35 Year
  Sex: Male

DRUGS (2)
  1. CYPROTERONE ACETATE [Suspect]
     Indication: TRANSGENDER HORMONAL THERAPY
     Dosage: 50 mg, BID
  2. ESTRADIOL [Suspect]
     Indication: TRANSGENDER HORMONAL THERAPY
     Dosage: Daily dose 100 ?g
     Route: 062

REACTIONS (1)
  - Meningioma benign [Recovered/Resolved]
